FAERS Safety Report 8983965 (Version 3)
Quarter: 2013Q1

REPORT INFORMATION
  Report Type: Spontaneous
  Country: US (occurrence: None)
  Receive Date: 20121212
  Receipt Date: 20130108
  Transmission Date: 20140127
  Serious: Yes (Hospitalization, Other)
  Sender: FDA-Public Use
  Company Number: AUR-APL-2012-05273

PATIENT
  Age: 41 Year
  Sex: Female
  Weight: 45 kg

DRUGS (12)
  1. ONDANSETRON [Suspect]
     Indication: NAUSEA
     Dosage: 16 MG (8 MG, 2 IN 1 D)
  2. ONDANSETRON [Suspect]
     Indication: VOMITING
     Dosage: 16 MG (8 MG, 2 IN 1 D)
  3. METOCLOPRAMIDE [Suspect]
     Indication: NAUSEA
     Dosage: 30 MG (10 MG, 3 IN 1 D)
  4. METOCLOPRAMIDE [Suspect]
     Indication: VOMITING
     Dosage: 30 MG (10 MG, 3 IN 1 D)
  5. PROMETHAZINE [Suspect]
     Indication: NAUSEA
     Dosage: 12.5 TO 25 MG, UP TO 3 TIMES DAILY, ORAL
     Route: 048
  6. PROMETHAZINE [Suspect]
     Indication: VOMITING
     Dosage: 12.5 TO 25 MG, UP TO 3 TIMES DAILY, ORAL
     Route: 048
  7. PROCHLORPERAZINE [Suspect]
     Indication: PRODUCT USED FOR UNKNOWN INDICATION
  8. ERYTHROMYCIN [Suspect]
     Indication: PRODUCT USED FOR UNKNOWN INDICATION
  9. DONNATAL [Concomitant]
  10. LOPERAMIDE [Concomitant]
  11. OMEPRAZOLE [Concomitant]
  12. SUCRALFATE [Concomitant]

REACTIONS (10)
  - Drug ineffective [None]
  - Drug intolerance [None]
  - Weight increased [None]
  - Economic problem [None]
  - Somnolence [None]
  - Dyskinesia [None]
  - Diarrhoea [None]
  - Dehydration [None]
  - Malnutrition [None]
  - Therapy cessation [None]
